FAERS Safety Report 15089083 (Version 1)
Quarter: 2018Q2

REPORT INFORMATION
  Report Type: Spontaneous
  Country: US (occurrence: US)
  Receive Date: 20180629
  Receipt Date: 20180629
  Transmission Date: 20180711
  Serious: No
  Sender: FDA-Public Use
  Company Number: US-SA-2018SA131392

PATIENT
  Age: 55 Year
  Sex: Male
  Weight: 107.1 kg

DRUGS (5)
  1. AMPYRA [Concomitant]
     Active Substance: DALFAMPRIDINE
     Dosage: 10 MG EXTENDED RELEASE TABLET
     Route: 048
  2. AUBAGIO [Suspect]
     Active Substance: TERIFLUNOMIDE
     Indication: MULTIPLE SCLEROSIS
     Dosage: 7 UNK
     Dates: start: 201610
  3. AUBAGIO [Suspect]
     Active Substance: TERIFLUNOMIDE
     Dosage: 7 MG,QD
     Route: 048
     Dates: start: 20170404
  4. MIRAPEX [Concomitant]
     Active Substance: PRAMIPEXOLE DIHYDROCHLORIDE
     Dosage: 0.25 MG, HS
     Route: 048
  5. BACLOFEN. [Concomitant]
     Active Substance: BACLOFEN
     Dosage: 10 MG, TID
     Route: 048

REACTIONS (9)
  - Paraesthesia [Unknown]
  - Movement disorder [Unknown]
  - Gait disturbance [Unknown]
  - Micturition urgency [Unknown]
  - Pollakiuria [Unknown]
  - Bladder dysfunction [Unknown]
  - Muscular weakness [Unknown]
  - Gulf war syndrome [Unknown]
  - Hypoaesthesia [Unknown]
